FAERS Safety Report 17859494 (Version 2)
Quarter: 2020Q3

REPORT INFORMATION
  Report Type: Spontaneous
  Country: US (occurrence: US)
  Receive Date: 20200604
  Receipt Date: 20200908
  Transmission Date: 20201103
  Serious: No
  Sender: FDA-Public Use
  Company Number: US-MYLANLABS-2020M1053138

PATIENT
  Sex: Female
  Weight: 64 kg

DRUGS (1)
  1. ESTRADIOL TRANSDERMAL SYSTEM [Suspect]
     Active Substance: ESTRADIOL
     Indication: PREMATURE MENOPAUSE
     Dosage: 0.05 MILLIGRAM, QD
     Route: 062
     Dates: start: 20200123

REACTIONS (2)
  - Product quality issue [Unknown]
  - Breast tenderness [Not Recovered/Not Resolved]

NARRATIVE: CASE EVENT DATE: 2020
